FAERS Safety Report 7039729-8 (Version None)
Quarter: 2010Q4

REPORT INFORMATION
  Report Type: 
  Country: None (occurrence: None)
  Receive Date: 20101012
  Receipt Date: 20101005
  Transmission Date: 20110411
  Serious: Yes (Hospitalization)
  Sender: FDA-Public Use
  Company Number: US-AMGEN-KDL434689

PATIENT
  Sex: Female
  Weight: 158.9 kg

DRUGS (2)
  1. ENBREL [Suspect]
     Indication: RHEUMATOID ARTHRITIS
     Route: 058
     Dates: start: 20050421
  2. ENBREL [Suspect]
     Indication: PRODUCT USED FOR UNKNOWN INDICATION

REACTIONS (6)
  - BREAST MASS [None]
  - FIBROMYALGIA [None]
  - JOINT INJURY [None]
  - RHEUMATOID ARTHRITIS [None]
  - STRESS [None]
  - UTERINE CANCER [None]
